FAERS Safety Report 24688903 (Version 1)
Quarter: 2024Q4

REPORT INFORMATION
  Report Type: Spontaneous
  Country: CN (occurrence: CN)
  Receive Date: 20241203
  Receipt Date: 20241203
  Transmission Date: 20250114
  Serious: Yes (Other)
  Sender: CHEPLAPHARM
  Company Number: CN-CHEPLA-2024015029

PATIENT
  Age: 76 Year
  Sex: Male
  Weight: 50 kg

DRUGS (14)
  1. CAPECITABINE [Suspect]
     Active Substance: CAPECITABINE
     Dosage: THREE COMPLETED CYCLES OF THERAPY
     Dates: start: 20220723
  2. CAPECITABINE [Suspect]
     Active Substance: CAPECITABINE
     Dosage: THREE COMPLETED CYCLES OF THERAPY
     Dates: start: 20220818
  3. CAPECITABINE [Suspect]
     Active Substance: CAPECITABINE
     Dosage: THREE COMPLETED CYCLES OF THERAPY
     Dates: start: 20220910
  4. CAPECITABINE [Suspect]
     Active Substance: CAPECITABINE
     Dosage: 1500 MG (1000 MG/M2), BID D1?14, Q3W??DAILY DOSE: 2000 MILLIGRAM/M?
  5. OXALIPLATIN [Suspect]
     Active Substance: OXALIPLATIN
     Indication: Gastric cancer stage IV
     Dosage: THREE COMPLETED CYCLES OF THERAPY
     Dates: start: 20220723
  6. OXALIPLATIN [Suspect]
     Active Substance: OXALIPLATIN
     Indication: Gastric cancer stage IV
     Dosage: THREE COMPLETED CYCLES OF THERAPY
     Dates: start: 20220818
  7. OXALIPLATIN [Suspect]
     Active Substance: OXALIPLATIN
     Indication: Gastric cancer stage IV
     Dosage: THREE COMPLETED CYCLES OF THERAPY
     Dates: start: 20220910
  8. OXALIPLATIN [Suspect]
     Active Substance: OXALIPLATIN
     Indication: Gastric cancer stage IV
     Dosage: 200 MG?(130 MG/M2) D1
  9. IRINOTECAN [Suspect]
     Active Substance: IRINOTECAN
     Indication: Gastric cancer stage IV
  10. TISLELIZUMAB [Suspect]
     Active Substance: TISLELIZUMAB
     Indication: Gastric cancer stage IV
     Dosage: D1
  11. CATEQUENTINIB [Suspect]
     Active Substance: CATEQUENTINIB
     Indication: Gastric cancer stage IV
     Dosage: THREE COMPLETED CYCLES OF THERAPY
     Dates: start: 20220723
  12. CATEQUENTINIB [Suspect]
     Active Substance: CATEQUENTINIB
     Indication: Gastric cancer stage IV
     Dosage: THREE COMPLETED CYCLES OF THERAPY
     Dates: start: 20220818
  13. CATEQUENTINIB [Suspect]
     Active Substance: CATEQUENTINIB
     Indication: Gastric cancer stage IV
     Dosage: THREE COMPLETED CYCLES OF THERAPY
     Dates: start: 20220910
  14. CATEQUENTINIB [Suspect]
     Active Substance: CATEQUENTINIB
     Indication: Gastric cancer stage IV
     Dosage: D1?14
     Route: 048

REACTIONS (4)
  - Seizure [Recovering/Resolving]
  - Cytokine release syndrome [Recovered/Resolved]
  - Ischaemic cerebral infarction [Unknown]
  - Therapy partial responder [Unknown]

NARRATIVE: CASE EVENT DATE: 20220929
